FAERS Safety Report 13717455 (Version 1)
Quarter: 2017Q3

REPORT INFORMATION
  Report Type: Spontaneous
  Country: US (occurrence: US)
  Receive Date: 20170703
  Receipt Date: 20170703
  Transmission Date: 20171127
  Serious: No
  Sender: FDA-Public Use
  Company Number: None

PATIENT
  Age: 57 Year
  Sex: Female

DRUGS (1)
  1. IBRANCE [Suspect]
     Active Substance: PALBOCICLIB
     Indication: CHRONIC MYELOID LEUKAEMIA
     Dosage: 400MG (4 TABLETS) BY MOUTH ONCE DAILY
     Route: 048
     Dates: start: 20170112

REACTIONS (3)
  - Diarrhoea [None]
  - Fatigue [None]
  - Muscle spasms [None]

NARRATIVE: CASE EVENT DATE: 20170630
